FAERS Safety Report 7514711-2 (Version None)
Quarter: 2011Q2

REPORT INFORMATION
  Report Type: 
  Country: None (occurrence: None)
  Receive Date: 20110601
  Receipt Date: 20110516
  Transmission Date: 20111010
  Serious: Yes (Other)
  Sender: FDA-Public Use
  Company Number: US-BAYER-200943664NA

PATIENT
  Age: 21 Year
  Sex: Female
  Weight: 78 kg

DRUGS (10)
  1. COLACE [Concomitant]
  2. VISTARIL [Concomitant]
  3. ZOVIA 1/35E-21 [Concomitant]
  4. VICODIN [Concomitant]
  5. CIPROFLOXACIN [Concomitant]
  6. DILAUDID [Concomitant]
  7. REGLAN [Concomitant]
  8. TORADOL [Concomitant]
  9. YASMIN [Suspect]
     Indication: ACNE
     Dosage: UNK
     Dates: start: 20030420, end: 20050101
  10. PHENERGAN EXPECTORANT W/ CODEINE [Concomitant]

REACTIONS (3)
  - ORGAN FAILURE [None]
  - GALLBLADDER DISORDER [None]
  - CHOLECYSTITIS CHRONIC [None]
